FAERS Safety Report 11696191 (Version 1)
Quarter: 2015Q4

REPORT INFORMATION
  Report Type: Spontaneous
  Country: SI (occurrence: SI)
  Receive Date: 20151104
  Receipt Date: 20151104
  Transmission Date: 20160304
  Serious: Yes (Other)
  Sender: FDA-Public Use
  Company Number: SI-AMGEN-SVNSP2015114927

PATIENT
  Age: 73 Year
  Sex: Male

DRUGS (6)
  1. TULIP                              /01326102/ [Concomitant]
     Dosage: UNK, QD
  2. CONTROLOC                          /01263201/ [Concomitant]
     Dosage: 20 MG, UNK
  3. XGEVA [Suspect]
     Active Substance: DENOSUMAB
     Indication: METASTASES TO BONE
     Dosage: 120 MG, UNK
     Route: 058
     Dates: start: 20140103, end: 20150918
  4. LORISTA [Concomitant]
     Active Substance: LOSARTAN POTASSIUM
     Dosage: UNK, QD
  5. OLFEN                              /00372302/ [Concomitant]
     Active Substance: DICLOFENAC SODIUM
     Dosage: UNK, TID
  6. LEKADOL [Concomitant]
     Active Substance: ACETAMINOPHEN

REACTIONS (1)
  - Osteonecrosis of jaw [Unknown]

NARRATIVE: CASE EVENT DATE: 20150918
